FAERS Safety Report 5159888-1 (Version None)
Quarter: 2006Q4

REPORT INFORMATION
  Report Type: 
  Country: None (occurrence: None)
  Receive Date: 20061129
  Receipt Date: 20060407
  Transmission Date: 20070319
  Serious: No
  Sender: FDA-Public Use
  Company Number: US-GLAXOSMITHKLINE-A0600959A

PATIENT
  Age: 84 Year
  Sex: Male

DRUGS (24)
  1. WELLBUTRIN SR [Suspect]
     Indication: DEPRESSION
     Dosage: 150MG PER DAY
     Route: 048
     Dates: start: 20040101, end: 20060309
  2. WELLBUTRIN XL [Suspect]
     Indication: DEPRESSION
     Dosage: 200MG PER DAY
     Route: 048
     Dates: start: 20060309
  3. ALTACE [Concomitant]
  4. FLOMAX [Concomitant]
  5. ENDURE [Concomitant]
  6. TENORMIN [Concomitant]
  7. LASIX [Concomitant]
  8. PROTONIX [Concomitant]
  9. UNKNOWN MEDICATION [Concomitant]
  10. POTASSIUM ACETATE [Concomitant]
  11. ZETIA [Concomitant]
  12. PLAVIX [Concomitant]
  13. TRAZODONE HCL [Concomitant]
  14. CRESTOR [Concomitant]
  15. VITAMINS [Concomitant]
  16. SAW PALMETTO [Concomitant]
  17. GLUCOSAMINE [Concomitant]
  18. GREEN SOURCE VITAMIN [Concomitant]
  19. ASPIRIN [Concomitant]
  20. GARLIC [Concomitant]
  21. NIACIN [Concomitant]
  22. N-ACETYL CYSTINE [Concomitant]
  23. ANTIOXIDANT [Concomitant]
  24. UNKNOWN MEDICATION [Concomitant]

REACTIONS (2)
  - ANOREXIA [None]
  - WEIGHT DECREASED [None]
